FAERS Safety Report 26103653 (Version 2)
Quarter: 2025Q4

REPORT INFORMATION
  Report Type: Spontaneous
  Country: EU (occurrence: EU)
  Receive Date: 20251129
  Receipt Date: 20251203
  Transmission Date: 20260118
  Serious: Yes (Other)
  Sender: CELLTRION
  Company Number: EU-CELLTRION INC.-2025GR042583

PATIENT

DRUGS (3)
  1. INFLIXIMAB [Suspect]
     Active Substance: INFLIXIMAB
     Indication: Inflammatory bowel disease
     Route: 058
  2. INFLIXIMAB [Suspect]
     Active Substance: INFLIXIMAB
     Indication: Inflammatory bowel disease
     Dosage: TWO INTRAVENOUS INFUSIONS PRIOR  STARTING SUBCUTANEOUS INFLIXIMAB
     Route: 042
  3. INFLIXIMAB [Suspect]
     Active Substance: INFLIXIMAB
     Dosage: LONG-TERM INTRAVENOUS  INFLIXIMAB AT A DOSE OF 5 MG/KG
     Route: 042

REACTIONS (2)
  - Neoplasm malignant [Unknown]
  - Therapy change [Unknown]
